FAERS Safety Report 9114072 (Version 1)
Quarter: 2013Q1

REPORT INFORMATION
  Report Type: Spontaneous
  Country: US (occurrence: US)
  Receive Date: 20130128
  Receipt Date: 20130128
  Transmission Date: 20140127
  Serious: No
  Sender: FDA-Public Use
  Company Number: US-009507513-1301USA010502

PATIENT
  Sex: Female

DRUGS (10)
  1. SIMVASTATIN [Suspect]
  2. LYRICA [Concomitant]
     Indication: NEUROPATHY PERIPHERAL
     Dosage: 150 MG, BID
     Route: 048
     Dates: start: 201209
  3. GLIMEPIRIDE [Concomitant]
  4. METFORMIN [Concomitant]
  5. HYDROCODONE [Concomitant]
  6. WARFARIN SODIUM [Concomitant]
  7. METOPROLOL [Concomitant]
  8. PRILOSEC [Concomitant]
  9. FUROSEMIDE [Concomitant]
  10. LETROZOLE [Concomitant]

REACTIONS (1)
  - Drug eruption [Unknown]
